FAERS Safety Report 12176034 (Version 1)
Quarter: 2016Q1

REPORT INFORMATION
  Report Type: Spontaneous
  Country: US (occurrence: US)
  Receive Date: 20160314
  Receipt Date: 20160314
  Transmission Date: 20160526
  Serious: Yes (Life-Threatening, Hospitalization, Other)
  Sender: FDA-Public Use
  Company Number: US-009507513-1603USA005101

PATIENT
  Age: 74 Year
  Sex: Female

DRUGS (1)
  1. ZOLINZA [Suspect]
     Active Substance: VORINOSTAT
     Dosage: UNK
     Route: 048
     Dates: start: 20150901

REACTIONS (7)
  - Alopecia [Unknown]
  - Muscle spasms [Unknown]
  - Dysgeusia [Unknown]
  - Diarrhoea [Unknown]
  - Thrombosis [Unknown]
  - Weight decreased [Unknown]
  - Fatigue [Unknown]

NARRATIVE: CASE EVENT DATE: 20150905
